FAERS Safety Report 6493327-3 (Version None)
Quarter: 2009Q4

REPORT INFORMATION
  Report Type: 
  Country: None (occurrence: None)
  Receive Date: 20091211
  Receipt Date: 20091211
  Transmission Date: 20100525
  Serious: Yes (Other)
  Sender: FDA-Public Use
  Company Number: None

PATIENT

DRUGS (1)
  1. ALLI [Suspect]
     Indication: DIVERTICULITIS

REACTIONS (2)
  - DECREASED APPETITE [None]
  - DIVERTICULITIS [None]
